FAERS Safety Report 9133202 (Version 1)
Quarter: 2013Q1

REPORT INFORMATION
  Report Type: Report from Study
  Country: US (occurrence: US)
  Receive Date: 20130301
  Receipt Date: 20130301
  Transmission Date: 20140127
  Serious: Yes (Death)
  Sender: FDA-Public Use
  Company Number: US-ROCHE-1196890

PATIENT
  Sex: Male

DRUGS (1)
  1. CELLCEPT [Suspect]
     Indication: TRANSPLANT
     Dosage: 1 TAB BY MOUTH TWICE A DAY
     Route: 048

REACTIONS (1)
  - Death [Fatal]
